FAERS Safety Report 8241722 (Version 3)
Quarter: 2013Q2

REPORT INFORMATION
  Report Type: Spontaneous
  Country: ZA (occurrence: ZA)
  Receive Date: 20111111
  Receipt Date: 20130401
  Transmission Date: 20140414
  Serious: Yes (Other)
  Sender: FDA-Public Use
  Company Number: ZA-ROCHE-1009653

PATIENT
  Sex: Male

DRUGS (9)
  1. LUCENTIS [Suspect]
     Indication: AGE-RELATED MACULAR DEGENERATION
     Route: 050
  2. LUCENTIS [Suspect]
     Route: 050
     Dates: start: 20110506
  3. LUCENTIS [Suspect]
     Route: 050
     Dates: start: 20110701
  4. LUCENTIS [Suspect]
     Route: 050
     Dates: start: 20110902
  5. LUCENTIS [Suspect]
     Route: 050
     Dates: start: 20111111
  6. LUCENTIS [Suspect]
     Route: 050
     Dates: start: 20120131
  7. LUCENTIS [Suspect]
     Route: 050
     Dates: start: 20120614
  8. LUCENTIS [Suspect]
     Route: 050
     Dates: start: 20121012
  9. LUCENTIS [Suspect]
     Route: 050
     Dates: start: 20130320

REACTIONS (4)
  - Retinal oedema [Unknown]
  - Retinal disorder [Unknown]
  - Visual acuity reduced [Unknown]
  - Macular degeneration [Unknown]
